FAERS Safety Report 7460811-5 (Version None)
Quarter: 2011Q2

REPORT INFORMATION
  Report Type: 
  Country: None (occurrence: None)
  Receive Date: 20110505
  Receipt Date: 20110426
  Transmission Date: 20111010
  Serious: Yes (Other)
  Sender: FDA-Public Use
  Company Number: US-PFIZER INC-2011090216

PATIENT
  Sex: Female
  Weight: 86.168 kg

DRUGS (2)
  1. PRISTIQ [Suspect]
     Indication: DEPRESSION
     Dosage: 100 MG, 1X/DAY
     Route: 048
     Dates: start: 20100101
  2. NEURONTIN [Concomitant]
     Dosage: UNK

REACTIONS (5)
  - HYPOTHYROIDISM [None]
  - NAUSEA [None]
  - HEADACHE [None]
  - LETHARGY [None]
  - DRUG ADMINISTRATION ERROR [None]
